FAERS Safety Report 20719843 (Version 2)
Quarter: 2022Q2

REPORT INFORMATION
  Report Type: Spontaneous
  Country: PR (occurrence: PR)
  Receive Date: 20220418
  Receipt Date: 20220526
  Transmission Date: 20220720
  Serious: No
  Sender: FDA-Public Use
  Company Number: PR-PFIZER INC-202200453776

PATIENT
  Age: 12 Year
  Sex: Female
  Weight: 29.94 kg

DRUGS (1)
  1. GENOTROPIN [Suspect]
     Active Substance: SOMATROPIN
     Dosage: 1.2 MG (6 DAYS A WEEK)
     Dates: start: 201910

REACTIONS (2)
  - Device occlusion [Unknown]
  - Device use issue [Unknown]

NARRATIVE: CASE EVENT DATE: 20220320
